FAERS Safety Report 12159632 (Version 3)
Quarter: 2016Q2

REPORT INFORMATION
  Report Type: Spontaneous
  Country: US (occurrence: US)
  Receive Date: 20160308
  Receipt Date: 20160504
  Transmission Date: 20160815
  Serious: No
  Sender: FDA-Public Use
  Company Number: US-GLAXOSMITHKLINE-US2016029427

PATIENT
  Age: 65 Year
  Sex: Female

DRUGS (11)
  1. ADVAIR DISKUS [Suspect]
     Active Substance: FLUTICASONE PROPIONATE\SALMETEROL XINAFOATE
     Dosage: UNK
  2. ALBUTEROL. [Concomitant]
     Active Substance: ALBUTEROL
  3. ADVAIR DISKUS [Suspect]
     Active Substance: FLUTICASONE PROPIONATE\SALMETEROL XINAFOATE
     Indication: ASTHMA
     Dosage: UNK UNK, QD
     Route: 055
     Dates: start: 20160227, end: 20160316
  4. ASPIRIN (BABY) [Concomitant]
     Active Substance: ASPIRIN
  5. AMBIEN [Concomitant]
     Active Substance: ZOLPIDEM TARTRATE
  6. ADVAIR DISKUS [Suspect]
     Active Substance: FLUTICASONE PROPIONATE\SALMETEROL XINAFOATE
     Dosage: UNK UNK, BID
     Dates: start: 20160326
  7. ADVAIR DISKUS [Suspect]
     Active Substance: FLUTICASONE PROPIONATE\SALMETEROL XINAFOATE
     Dosage: 1 PUFF(S), QD
     Route: 055
     Dates: start: 20160229
  8. SINGULAIR [Concomitant]
     Active Substance: MONTELUKAST SODIUM
  9. LIPITOR [Concomitant]
     Active Substance: ATORVASTATIN CALCIUM
  10. FLOVENT DISKUS [Suspect]
     Active Substance: FLUTICASONE PROPIONATE
     Indication: ASTHMA
     Dosage: 2 PUFF(S), BID
     Route: 055
     Dates: start: 20160323, end: 20160326
  11. INTERMEZZO [Concomitant]
     Active Substance: ZOLPIDEM TARTRATE

REACTIONS (4)
  - Off label use [Unknown]
  - Drug ineffective [Unknown]
  - Prescribed underdose [Unknown]
  - Chest discomfort [Not Recovered/Not Resolved]

NARRATIVE: CASE EVENT DATE: 20160229
